FAERS Safety Report 12407244 (Version 1)
Quarter: 2016Q2

REPORT INFORMATION
  Report Type: Spontaneous
  Country: US (occurrence: US)
  Receive Date: 20160526
  Receipt Date: 20160526
  Transmission Date: 20160815
  Serious: No
  Sender: FDA-Public Use
  Company Number: US-PFIZER INC-2016254314

PATIENT
  Age: 27 Year
  Sex: Female
  Weight: 73.94 kg

DRUGS (1)
  1. SERTRALINE HCL [Suspect]
     Active Substance: SERTRALINE HYDROCHLORIDE
     Indication: HAEMORRHAGE
     Dosage: 50 MG, 1X/DAY (ONE AT NIGHT)
     Route: 048
     Dates: start: 20160203

REACTIONS (3)
  - Therapeutic response unexpected [Unknown]
  - Pre-existing condition improved [Unknown]
  - Product use issue [Unknown]

NARRATIVE: CASE EVENT DATE: 20160203
